FAERS Safety Report 8844367 (Version 1)
Quarter: 2012Q4

REPORT INFORMATION
  Report Type: 
  Country: US (occurrence: US)
  Receive Date: 20121017
  Receipt Date: 20121017
  Transmission Date: 20130627
  Serious: Yes (Hospitalization, Other)
  Sender: FDA-Public Use
  Company Number: US-BAYER-2012-107319

PATIENT
  Age: 74 Year
  Sex: Female

DRUGS (9)
  1. BETAPACE [Suspect]
     Dosage: UNK
     Dates: end: 20120815
  2. PLAVIX [Suspect]
     Indication: THROMBOSIS PROPHYLAXIS
     Dosage: Daily dose 75 mg
     Route: 048
     Dates: start: 2006, end: 20120815
  3. CARDIZEM [Suspect]
  4. DIGOXIN [Suspect]
  5. LIPITOR [Concomitant]
     Dosage: UNK
  6. MULTIVITAMINS [Concomitant]
     Dosage: UNK
  7. LUTEIN [Concomitant]
     Dosage: UNK
  8. COQ10 [Concomitant]
     Dosage: UNK
  9. XANAX [Concomitant]
     Dosage: UNK

REACTIONS (4)
  - Atrial fibrillation [None]
  - Heart rate irregular [None]
  - Diarrhoea [None]
  - Vomiting [None]
